FAERS Safety Report 4631086-7 (Version None)
Quarter: 2005Q2

REPORT INFORMATION
  Report Type: 
  Country: None (occurrence: None)
  Receive Date: 20050406
  Receipt Date: 20050324
  Transmission Date: 20051028
  Serious: Yes (Life-Threatening, Hospitalization, Other)
  Sender: FDA-Public Use
  Company Number: 2005027439

PATIENT
  Age: 79 Year
  Sex: Female
  Weight: 44.9061 kg

DRUGS (12)
  1. ZYVOX [Suspect]
     Indication: PNEUMONIA STAPHYLOCOCCAL
     Dosage: 1200 MG (600 MG, TWICE DAILY)
     Dates: start: 20050208
  2. LANSOPRAZOLE [Concomitant]
  3. LEVOTHYROXINE SODIUM [Concomitant]
  4. PAROXETINE HCL [Concomitant]
  5. AMLODIPINE BESYLATE [Concomitant]
  6. PREDNISONE [Concomitant]
  7. PYRIDOSTIGMINE BROMIDE (PYRIDOSTIGMINE BROMIDE) [Concomitant]
  8. FUROSEMIDE [Concomitant]
  9. LOSARTAN POTASSIUM [Concomitant]
  10. FENTANYL [Concomitant]
  11. INSULIN [Concomitant]
  12. OXYGEN (OXYGEN) [Concomitant]

REACTIONS (3)
  - LETHARGY [None]
  - OXYGEN SATURATION DECREASED [None]
  - SEPTIC SHOCK [None]
